FAERS Safety Report 8908867 (Version 1)
Quarter: 2012Q4

REPORT INFORMATION
  Report Type: 
  Country: US (occurrence: US)
  Receive Date: 20121113
  Receipt Date: 20121113
  Transmission Date: 20130627
  Serious: No
  Sender: FDA-Public Use
  Company Number: US-AMGEN-USASP2012011697

PATIENT
  Age: 58 Year
  Sex: Female

DRUGS (1)
  1. ENBREL [Suspect]
     Indication: PSORIASIS
     Dosage: 50 mg, 2 times/wk
     Dates: start: 20110725, end: 201110

REACTIONS (3)
  - Neutrophil count decreased [Recovered/Resolved]
  - Nasopharyngitis [Recovered/Resolved]
  - Herpes zoster [Recovered/Resolved]
